FAERS Safety Report 5488191-5 (Version None)
Quarter: 2007Q4

REPORT INFORMATION
  Report Type: 
  Country: None (occurrence: None)
  Receive Date: 20071017
  Receipt Date: 20071008
  Transmission Date: 20080405
  Serious: Yes (Hospitalization)
  Sender: FDA-Public Use
  Company Number: DE-ELI_LILLY_AND_COMPANY-DE200710002490

PATIENT
  Sex: Male

DRUGS (1)
  1. OLANZAPINE [Suspect]
     Route: 048
     Dates: start: 20061201

REACTIONS (13)
  - ABDOMINAL DISTENSION [None]
  - AMNESIA [None]
  - ANXIETY [None]
  - DISTURBANCE IN ATTENTION [None]
  - DYSPNOEA [None]
  - ERUCTATION [None]
  - HEADACHE [None]
  - HEPATOCELLULAR DAMAGE [None]
  - OBESITY [None]
  - PANIC ATTACK [None]
  - PRESYNCOPE [None]
  - TYPE 2 DIABETES MELLITUS [None]
  - VOMITING [None]
